FAERS Safety Report 17369851 (Version 3)
Quarter: 2024Q2

REPORT INFORMATION
  Report Type: Spontaneous
  Country: AR (occurrence: None)
  Receive Date: 20200205
  Receipt Date: 20240511
  Transmission Date: 20240715
  Serious: No
  Sender: FDA-Public Use
  Company Number: AR-ROCHE-2539201

PATIENT
  Sex: Male
  Weight: 80 kg

DRUGS (11)
  1. MABTHERA [Suspect]
     Active Substance: RITUXIMAB
     Indication: B-cell lymphoma
     Route: 065
     Dates: start: 20190621, end: 20191010
  2. MABTHERA [Suspect]
     Active Substance: RITUXIMAB
     Route: 065
     Dates: start: 20191216
  3. CISPLATIN [Suspect]
     Active Substance: CISPLATIN
     Indication: B-cell lymphoma
     Route: 065
     Dates: start: 20191216
  4. CYCLOPHOSPHAMIDE [Concomitant]
     Active Substance: CYCLOPHOSPHAMIDE
     Indication: B-cell lymphoma
     Dates: start: 20190621, end: 20191010
  5. DOXORUBICIN [Concomitant]
     Active Substance: DOXORUBICIN
     Indication: B-cell lymphoma
     Dates: start: 20190621, end: 20191010
  6. VINCRISTINE [Concomitant]
     Active Substance: VINCRISTINE
     Indication: B-cell lymphoma
     Dates: start: 20190621, end: 20191010
  7. PREDNISONE [Concomitant]
     Active Substance: PREDNISONE
     Indication: B-cell lymphoma
     Dates: start: 20190621, end: 20191010
  8. ETOPOSIDE [Concomitant]
     Active Substance: ETOPOSIDE
     Dates: start: 20191216
  9. METHYLPREDNISOLONE [Concomitant]
     Active Substance: METHYLPREDNISOLONE
     Dates: start: 20191216
  10. CYTARABINE [Concomitant]
     Active Substance: CYTARABINE
     Dates: start: 20191216
  11. METHOTREXATE [Concomitant]
     Active Substance: METHOTREXATE
     Indication: B-cell lymphoma
     Dates: start: 20190621, end: 20191010

REACTIONS (4)
  - Drug resistance [Unknown]
  - Hypercalcaemia [Unknown]
  - Night sweats [Unknown]
  - Therapy non-responder [Unknown]
